FAERS Safety Report 19932625 (Version 1)
Quarter: 2021Q4

REPORT INFORMATION
  Report Type: Spontaneous
  Country: US (occurrence: US)
  Receive Date: 20211007
  Receipt Date: 20211007
  Transmission Date: 20220303
  Serious: Yes (Life-Threatening)
  Sender: FDA-Public Use
  Company Number: None

PATIENT
  Age: 50 Year
  Sex: Female
  Weight: 63 kg

DRUGS (3)
  1. .DELTA.8-TETRAHYDROCANNABINOL\HERBALS [Suspect]
     Active Substance: .DELTA.8-TETRAHYDROCANNABINOL\HERBALS
     Indication: Feeling of relaxation
     Dosage: ?          QUANTITY:.5 DROP(S);
     Route: 048
     Dates: start: 20211006, end: 20211006
  2. PROGESTERONE [Concomitant]
     Active Substance: PROGESTERONE
  3. VITAMINS [Concomitant]
     Active Substance: VITAMINS

REACTIONS (11)
  - Nonspecific reaction [None]
  - Loss of personal independence in daily activities [None]
  - Insomnia [None]
  - Dysphagia [None]
  - Dyspnoea [None]
  - Chest discomfort [None]
  - Speech disorder [None]
  - Diplopia [None]
  - Gait disturbance [None]
  - Seizure [None]
  - Tremor [None]

NARRATIVE: CASE EVENT DATE: 20211006
